FAERS Safety Report 10652240 (Version 1)
Quarter: 2014Q4

REPORT INFORMATION
  Report Type: Spontaneous
  Country: ES (occurrence: ES)
  Receive Date: 20141215
  Receipt Date: 20141215
  Transmission Date: 20150529
  Serious: Yes (Hospitalization)
  Sender: FDA-Public Use
  Company Number: ES-SA-2014SA168426

PATIENT
  Age: 89 Year
  Sex: Female

DRUGS (13)
  1. ALDACTONE [Interacting]
     Active Substance: SPIRONOLACTONE
     Indication: CARDIAC FAILURE CONGESTIVE
     Dosage: 25 MG
     Route: 048
     Dates: start: 20140305, end: 20140517
  2. AKINETON [Concomitant]
     Active Substance: BIPERIDEN HYDROCHLORIDE
     Dosage: 2MG,0-0-1
  3. TROMALYT [Concomitant]
     Active Substance: ASPIRIN
     Dosage: 0-1-0
  4. SEGURIL [Suspect]
     Active Substance: FUROSEMIDE
     Indication: CARDIAC FAILURE CONGESTIVE
     Dosage: 40 MG 1 CP AL DIA?STRENGTH: SEGURIL 40 MG COMPRIMIDOS , 30 COMPRIMIDOS
     Route: 048
     Dates: start: 2012, end: 20140530
  5. ZYPREXA [Concomitant]
     Active Substance: OLANZAPINE
     Dosage: 2.5,0-0-1
  6. LEVOTHYROXINE [Concomitant]
     Active Substance: LEVOTHYROXINE
     Dosage: 50MG
  7. ORFIDAL [Concomitant]
     Active Substance: LORAZEPAM
     Dosage: 0-0-1
  8. ISOSORBIDE MONONITRATE. [Concomitant]
     Active Substance: ISOSORBIDE MONONITRATE
     Dosage: 1/2-0-0
  9. ISOPHANE INSULIN [Concomitant]
     Active Substance: INSULIN NOS
     Dosage: 10U
  10. ALDACTONE [Concomitant]
     Active Substance: SPIRONOLACTONE
     Dosage: 1-0-0
  11. DIGOXIN. [Concomitant]
     Active Substance: DIGOXIN
     Indication: ATRIAL FIBRILLATION
     Dosage: 1/2 CP AL DIA(0.25MG)
     Route: 048
     Dates: start: 2013, end: 20140527
  12. ATORVASTATIN [Concomitant]
     Active Substance: ATORVASTATIN
     Dosage: 40MG,0-0-1
  13. ENALAPRIL [Concomitant]
     Active Substance: ENALAPRIL

REACTIONS (2)
  - Hyperkalaemia [Unknown]
  - Hyponatraemia [Unknown]

NARRATIVE: CASE EVENT DATE: 20140512
